FAERS Safety Report 25856601 (Version 1)
Quarter: 2025Q3

REPORT INFORMATION
  Report Type: Spontaneous
  Country: CA (occurrence: CA)
  Receive Date: 20250929
  Receipt Date: 20250929
  Transmission Date: 20251021
  Serious: Yes (Death, Hospitalization, Other)
  Sender: GLAXOSMITHKLINE
  Company Number: CA-GLAXOSMITHKLINE-CA2025AMR117130

PATIENT
  Age: 83 Year
  Sex: Female

DRUGS (1)
  1. VENTOLIN [Suspect]
     Active Substance: ALBUTEROL SULFATE
     Indication: Product used for unknown indication

REACTIONS (5)
  - Respiratory failure [Fatal]
  - Lactic acidosis [Fatal]
  - Tachycardia [Fatal]
  - General physical health deterioration [Fatal]
  - Hypervolaemia [Fatal]
